FAERS Safety Report 13073269 (Version 4)
Quarter: 2017Q2

REPORT INFORMATION
  Report Type: Spontaneous
  Country: FR (occurrence: FR)
  Receive Date: 20161229
  Receipt Date: 20170405
  Transmission Date: 20170830
  Serious: Yes (Other)
  Sender: FDA-Public Use
  Company Number: FR-JNJFOC-20161224185

PATIENT

DRUGS (2)
  1. INFLIXIMAB, RECOMBINANT [Suspect]
     Active Substance: INFLIXIMAB
     Indication: RHEUMATOID ARTHRITIS
     Route: 042
  2. METHOTREXATE. [Concomitant]
     Active Substance: METHOTREXATE
     Route: 065

REACTIONS (11)
  - Rhinitis [Unknown]
  - Ear infection [Unknown]
  - Adverse event [Unknown]
  - Bone tuberculosis [Unknown]
  - Hypersensitivity vasculitis [Unknown]
  - Gastrointestinal infection [Unknown]
  - Drug ineffective [Unknown]
  - Pneumonia [Unknown]
  - Arthritis infective [Unknown]
  - Pharyngitis [Unknown]
  - Anaemia [Unknown]
